FAERS Safety Report 25005915 (Version 2)
Quarter: 2025Q1

REPORT INFORMATION
  Report Type: Spontaneous
  Country: US (occurrence: US)
  Receive Date: 20250224
  Receipt Date: 20250224
  Transmission Date: 20250409
  Serious: Yes (Hospitalization, Other)
  Sender: AMGEN
  Company Number: US-AMGEN-USASP2025034757

PATIENT

DRUGS (16)
  1. ADALIMUMAB [Suspect]
     Active Substance: ADALIMUMAB
     Indication: Colitis ulcerative
     Route: 065
  2. ADALIMUMAB [Suspect]
     Active Substance: ADALIMUMAB
     Indication: Crohn^s disease
  3. INFLIXIMAB [Suspect]
     Active Substance: INFLIXIMAB
     Indication: Colitis ulcerative
     Route: 065
  4. INFLIXIMAB [Suspect]
     Active Substance: INFLIXIMAB
     Indication: Crohn^s disease
  5. MESALAMINE [Concomitant]
     Active Substance: MESALAMINE
     Route: 065
  6. MERCAPTOPURINE [Concomitant]
     Active Substance: MERCAPTOPURINE
     Route: 065
  7. AZATHIOPRINE [Concomitant]
     Active Substance: AZATHIOPRINE
     Route: 065
  8. METHOTREXATE [Concomitant]
     Active Substance: METHOTREXATE
     Route: 065
  9. TOFACITINIB [Concomitant]
     Active Substance: TOFACITINIB
     Route: 065
  10. UPADACITINIB [Concomitant]
     Active Substance: UPADACITINIB
     Route: 065
  11. CERTOLIZUMAB [Concomitant]
     Active Substance: CERTOLIZUMAB
     Route: 065
  12. GOLIMUMAB [Concomitant]
     Active Substance: GOLIMUMAB
     Route: 065
  13. VEDOLIZUMAB [Concomitant]
     Active Substance: VEDOLIZUMAB
     Route: 065
  14. NATALIZUMAB [Concomitant]
     Active Substance: NATALIZUMAB
     Route: 065
  15. USTEKINUMAB [Concomitant]
     Active Substance: USTEKINUMAB
     Route: 065
  16. RISANKIZUMAB [Concomitant]
     Active Substance: RISANKIZUMAB
     Route: 065

REACTIONS (14)
  - Crohn^s disease [Unknown]
  - Colitis ulcerative [Unknown]
  - Intestinal perforation [Unknown]
  - Intestinal haemorrhage [Unknown]
  - Malignant melanoma [Unknown]
  - Cytomegalovirus colitis [Unknown]
  - Clostridium difficile infection [Unknown]
  - Anaphylactic reaction [Unknown]
  - Adverse drug reaction [Unknown]
  - Drug ineffective [Unknown]
  - Adverse reaction [Unknown]
  - Acne [Unknown]
  - Dermatitis [Unknown]
  - Upper respiratory tract infection [Unknown]
